FAERS Safety Report 6041305-0 (Version None)
Quarter: 2009Q1

REPORT INFORMATION
  Report Type: 
  Country: None (occurrence: None)
  Receive Date: 20090116
  Receipt Date: 20080930
  Transmission Date: 20090719
  Serious: Yes (Other)
  Sender: FDA-Public Use
  Company Number: US-BRISTOL-MYERS SQUIBB COMPANY-14352595

PATIENT
  Age: 47 Year
  Sex: Female
  Weight: 75 kg

DRUGS (3)
  1. ABILIFY [Suspect]
     Indication: BIPOLAR DISORDER
     Dosage: STARTED WITH 5MG/D, THEN INCREASED BY INCREMENTS OF 5 MG UNTIL 20MG/D, DOSE REDUCED TO 15MG/D
  2. LAMICTAL [Suspect]
     Indication: BIPOLAR DISORDER
  3. CYMBALTA [Suspect]

REACTIONS (5)
  - AKATHISIA [None]
  - DEPRESSION [None]
  - TARDIVE DYSKINESIA [None]
  - TREMOR [None]
  - URINARY RETENTION [None]
